FAERS Safety Report 18050153 (Version 1)
Quarter: 2020Q3

REPORT INFORMATION
  Report Type: Spontaneous
  Country: US (occurrence: US)
  Receive Date: 20200721
  Receipt Date: 20200721
  Transmission Date: 20201103
  Serious: No
  Sender: FDA-Public Use
  Company Number: US-TEVA-2020-US-1804522

PATIENT
  Sex: Female

DRUGS (1)
  1. TRAZODONE HYDROCHLORIDE. [Suspect]
     Active Substance: TRAZODONE HYDROCHLORIDE
     Dosage: TAKEN IT FOR OVER 6 YEARS
     Route: 065

REACTIONS (7)
  - Lethargy [Unknown]
  - Abnormal dreams [Unknown]
  - Illness [Unknown]
  - Insomnia [Unknown]
  - Product quality issue [Unknown]
  - Feeling abnormal [Unknown]
  - Drug intolerance [Unknown]
